FAERS Safety Report 7594588-X (Version None)
Quarter: 2011Q3

REPORT INFORMATION
  Report Type: 
  Country: None (occurrence: None)
  Receive Date: 20110707
  Receipt Date: 20110628
  Transmission Date: 20111222
  Serious: Yes (Death, Hospitalization, Other)
  Sender: FDA-Public Use
  Company Number: US-CELGENEUS-163-21880-11063777

PATIENT
  Sex: Male

DRUGS (3)
  1. CYTOXAN [Concomitant]
     Route: 065
  2. REVLIMID [Suspect]
     Dosage: 10 MILLIGRAM
     Route: 048
     Dates: start: 20091001, end: 20110101
  3. REVLIMID [Suspect]
     Indication: MULTIPLE MYELOMA
     Dosage: 25 MILLIGRAM
     Route: 048
     Dates: start: 20080201, end: 20080101

REACTIONS (6)
  - NEUTROPENIA [None]
  - CARDIAC FAILURE CONGESTIVE [None]
  - ADVERSE DRUG REACTION [None]
  - PNEUMONIA [None]
  - SEPSIS [None]
  - DEATH [None]
